FAERS Safety Report 7522230-2 (Version None)
Quarter: 2011Q2

REPORT INFORMATION
  Report Type: 
  Country: None (occurrence: None)
  Receive Date: 20110603
  Receipt Date: 20110530
  Transmission Date: 20111010
  Serious: Yes (Other)
  Sender: FDA-Public Use
  Company Number: FR-PFIZER INC-2011116235

PATIENT
  Sex: Female

DRUGS (1)
  1. SOMATROPIN RDNA [Suspect]
     Dosage: UNK
     Dates: start: 20060101

REACTIONS (1)
  - HYPERTHYROIDISM [None]
